FAERS Safety Report 5092939-1 (Version None)
Quarter: 2006Q3

REPORT INFORMATION
  Report Type: 
  Country: None (occurrence: None)
  Receive Date: 20060828
  Receipt Date: 20060815
  Transmission Date: 20061208
  Serious: Yes (Hospitalization)
  Sender: FDA-Public Use
  Company Number: GXKR2006GB04814

PATIENT
  Age: 62 Year
  Sex: Male

DRUGS (8)
  1. ASPIRIN [Suspect]
     Indication: MYOCARDIAL ISCHAEMIA
     Dosage: 75 MG, QD, ORAL
     Route: 048
     Dates: end: 20060616
  2. AMLODIPINE [Concomitant]
  3. ATENOLOL [Concomitant]
  4. ATORVASTATIN CALCIUM [Concomitant]
  5. FERROUS SULFATE TAB [Concomitant]
  6. LACTULOSE [Concomitant]
  7. ACETAMINOPHEN [Concomitant]
  8. SENNA (SENNA, SENNA ALEXANDRINA) [Concomitant]

REACTIONS (2)
  - DIZZINESS [None]
  - DUODENAL ULCER HAEMORRHAGE [None]
